FAERS Safety Report 21215505 (Version 2)
Quarter: 2022Q3

REPORT INFORMATION
  Report Type: Report from Study
  Country: CA (occurrence: CA)
  Receive Date: 20220816
  Receipt Date: 20220826
  Transmission Date: 20221026
  Serious: Yes (Hospitalization, Other)
  Sender: FDA-Public Use
  Company Number: CA-TAKEDA-2022TUS052461

PATIENT
  Age: 84 Year
  Sex: Female

DRUGS (3)
  1. VEDOLIZUMAB [Suspect]
     Active Substance: VEDOLIZUMAB
     Indication: Colitis ulcerative
     Dosage: 300 MILLIGRAM
     Route: 042
     Dates: start: 20220520
  2. PREDNISONE [Concomitant]
     Active Substance: PREDNISONE
     Dosage: 40 MILLIGRAM
  3. MESALAMINE [Concomitant]
     Active Substance: MESALAMINE
     Dosage: 4.8 GRAM, QD
     Dates: start: 202202

REACTIONS (8)
  - Colitis ulcerative [Unknown]
  - Poor venous access [Unknown]
  - Contusion [Unknown]
  - Dehydration [Unknown]
  - Asthenia [Unknown]
  - Skin wound [Unknown]
  - Catheter site injury [Unknown]
  - Incorrect dose administered [Unknown]
